FAERS Safety Report 6699123-6 (Version None)
Quarter: 2010Q2

REPORT INFORMATION
  Report Type: 
  Country: None (occurrence: None)
  Receive Date: 20100421
  Receipt Date: 20090608
  Transmission Date: 20101027
  Serious: No
  Sender: FDA-Public Use
  Company Number: APP200900325

PATIENT

DRUGS (3)
  1. HEPARIN SODIUM INJECTION [Suspect]
     Indication: ANTICOAGULANT THERAPY
     Dosage: 300 OTHER, ONCE ; 1000 USP UNITS, ONCE ; 5000 USP UNITS, ONCE
  2. HEPARIN SODIUM INJECTION [Suspect]
  3. HEPARIN SODIUM INJECTION [Suspect]

REACTIONS (1)
  - DRUG INEFFECTIVE [None]
